FAERS Safety Report 10907051 (Version 1)
Quarter: 2015Q1

REPORT INFORMATION
  Report Type: Spontaneous
  Country: US (occurrence: None)
  Receive Date: 20150309
  Receipt Date: 20150309
  Transmission Date: 20150721
  Serious: Yes (Hospitalization)
  Sender: FDA-Public Use
  Company Number: None

PATIENT
  Age: 69 Year
  Sex: Male
  Weight: 80 kg

DRUGS (17)
  1. SPIRONOLACTONE. [Concomitant]
     Active Substance: SPIRONOLACTONE
  2. DILTIAZEM [Concomitant]
     Active Substance: DILTIAZEM
  3. NORCO [Concomitant]
     Active Substance: ACETAMINOPHEN\HYDROCODONE BITARTRATE
  4. RIVAROXABAN [Suspect]
     Active Substance: RIVAROXABAN
     Indication: ATRIAL FIBRILLATION
     Route: 048
  5. DOCUSTATE [Concomitant]
  6. VIT B COMPLEX [Concomitant]
  7. VITAMIN D [Concomitant]
     Active Substance: CHOLECALCIFEROL
  8. AVODART [Concomitant]
     Active Substance: DUTASTERIDE
  9. FISH OIL [Concomitant]
     Active Substance: FISH OIL
  10. CYMBALTA [Concomitant]
     Active Substance: DULOXETINE HYDROCHLORIDE
  11. ALEVE [Concomitant]
     Active Substance: NAPROXEN SODIUM
  12. COMBIVENT RESPIMAT [Concomitant]
     Active Substance: ALBUTEROL SULFATE\IPRATROPIUM BROMIDE
  13. LANTUS SOLOSTAR PEN [Concomitant]
  14. LYRICA [Concomitant]
     Active Substance: PREGABALIN
  15. MULTIVITAMIN [Concomitant]
     Active Substance: VITAMINS
  16. OMEPRAZOLE. [Concomitant]
     Active Substance: OMEPRAZOLE
  17. DIGOXIN. [Concomitant]
     Active Substance: DIGOXIN

REACTIONS (1)
  - Gastrointestinal haemorrhage [None]

NARRATIVE: CASE EVENT DATE: 20140723
